FAERS Safety Report 9312734 (Version 1)
Quarter: 2013Q2

REPORT INFORMATION
  Report Type: Spontaneous
  Country: CN (occurrence: CN)
  Receive Date: 20130528
  Receipt Date: 20130528
  Transmission Date: 20140414
  Serious: Yes (Hospitalization)
  Sender: FDA-Public Use
  Company Number: CN-PFIZER INC-2013162335

PATIENT
  Age: 74 Year
  Sex: Male

DRUGS (2)
  1. CORDARONE [Suspect]
     Indication: ARRHYTHMIA
     Dosage: 1 DF, UNK
     Route: 048
  2. CORDARONE [Suspect]
     Dosage: 0.5 DF, UNK
     Route: 048

REACTIONS (2)
  - Hypothyroidism [Recovering/Resolving]
  - Oedema peripheral [Recovering/Resolving]
